FAERS Safety Report 5502589-8 (Version None)
Quarter: 2007Q4

REPORT INFORMATION
  Report Type: 
  Country: None (occurrence: None)
  Receive Date: 20071031
  Receipt Date: 20071026
  Transmission Date: 20080405
  Serious: Yes (Other)
  Sender: FDA-Public Use
  Company Number: PHNU2007DE03590

PATIENT
  Age: 16 Year
  Sex: Male

DRUGS (2)
  1. TRILEPTAL [Suspect]
     Indication: AFFECTIVE DISORDER
     Dosage: 900 MG/D
     Route: 048
     Dates: start: 20070101
  2. RISPERDAL [Concomitant]
     Dosage: 2 MG/D
     Dates: start: 20071001

REACTIONS (1)
  - DEPRESSION [None]
